FAERS Safety Report 21979627 (Version 1)
Quarter: 2023Q1

REPORT INFORMATION
  Report Type: Spontaneous
  Country: PT (occurrence: PT)
  Receive Date: 20230210
  Receipt Date: 20230210
  Transmission Date: 20230417
  Serious: Yes (Other)
  Sender: FDA-Public Use
  Company Number: PT-BAUSCHBL-2023BNL000887

PATIENT
  Age: 47 Year
  Sex: Female

DRUGS (2)
  1. PREDNISOLONE [Suspect]
     Active Substance: PREDNISOLONE
     Indication: Systemic lupus erythematosus
     Route: 065
  2. METHOTREXATE [Suspect]
     Active Substance: METHOTREXATE
     Indication: Systemic lupus erythematosus
     Route: 065

REACTIONS (3)
  - Meningitis aseptic [Unknown]
  - Systemic lupus erythematosus [Recovered/Resolved]
  - Cytomegalovirus infection reactivation [Unknown]
